FAERS Safety Report 16278948 (Version 4)
Quarter: 2019Q3

REPORT INFORMATION
  Report Type: Spontaneous
  Country: CO (occurrence: CO)
  Receive Date: 20190506
  Receipt Date: 20190807
  Transmission Date: 20191004
  Serious: Yes (Other)
  Sender: FDA-Public Use
  Company Number: CO-BIOMARINAP-CO-2019-123452

PATIENT
  Age: 15 Year
  Sex: Male
  Weight: 31 kg

DRUGS (2)
  1. NAGLAZYME [Suspect]
     Active Substance: GALSULFASE
     Indication: MUCOPOLYSACCHARIDOSIS VI
     Dosage: 30 MILLIGRAM, QW
     Route: 042
     Dates: start: 20160729
  2. NAGLAZYME [Suspect]
     Active Substance: GALSULFASE
     Dosage: 30 MILLIGRAM
     Route: 065
     Dates: start: 20070101

REACTIONS (3)
  - Inflammation [Recovering/Resolving]
  - Abdominal pain [Recovering/Resolving]
  - Incarcerated hernia [Recovering/Resolving]

NARRATIVE: CASE EVENT DATE: 20190430
